FAERS Safety Report 6026049-3 (Version None)
Quarter: 2008Q4

REPORT INFORMATION
  Report Type: 
  Country: None (occurrence: None)
  Receive Date: 20081230
  Receipt Date: 20081212
  Transmission Date: 20090506
  Serious: Yes (Hospitalization)
  Sender: FDA-Public Use
  Company Number: 038561

PATIENT
  Age: 49 Year
  Sex: Female

DRUGS (4)
  1. CARBOPLATIN [Suspect]
     Indication: GESTATIONAL TROPHOBLASTIC TUMOUR
  2. GEMCITABINE [Suspect]
     Indication: GESTATIONAL TROPHOBLASTIC TUMOUR
     Dosage: INTRAVENOUS
     Route: 042
  3. TAXOL [Suspect]
     Indication: GESTATIONAL TROPHOBLASTIC TUMOUR
  4. ANESTHETIC(UNKNOWN) [Suspect]
     Indication: GENERAL ANAESTHESIA

REACTIONS (2)
  - DRUG INTERACTION [None]
  - REVERSIBLE POSTERIOR LEUKOENCEPHALOPATHY SYNDROME [None]
